FAERS Safety Report 5389037-6 (Version None)
Quarter: 2007Q3

REPORT INFORMATION
  Report Type: 
  Country: None (occurrence: None)
  Receive Date: 20070717
  Receipt Date: 20070706
  Transmission Date: 20080115
  Serious: Yes (Death, Life-Threatening, Hospitalization, Other)
  Sender: FDA-Public Use
  Company Number: GB-JNJFOC-20070505165

PATIENT
  Sex: Male
  Weight: 97 kg

DRUGS (8)
  1. REMICADE [Suspect]
     Indication: RHEUMATOID ARTHRITIS
     Route: 042
  2. ASPIRIN [Concomitant]
  3. BENDROFLUAZIDE [Concomitant]
  4. CO-PROXAMOL [Concomitant]
  5. INDOMETHACIN [Concomitant]
  6. OMEPRAZOLE [Concomitant]
  7. TENORMIN [Concomitant]
  8. VALSARTAN [Concomitant]

REACTIONS (1)
  - LUNG NEOPLASM MALIGNANT [None]
